FAERS Safety Report 5254924-6 (Version None)
Quarter: 2007Q1

REPORT INFORMATION
  Report Type: 
  Country: None (occurrence: None)
  Receive Date: 20070305
  Receipt Date: 20070228
  Transmission Date: 20070707
  Serious: Yes (Death)
  Sender: FDA-Public Use
  Company Number: CN-BAYER-200710200GDS

PATIENT
  Age: 72 Year
  Sex: Male

DRUGS (4)
  1. AVELOX [Suspect]
     Indication: INFECTION
     Dosage: TOTAL DAILY DOSE: 400 MG  UNIT DOSE: 400 MG
     Route: 042
     Dates: start: 20061228, end: 20070102
  2. ULINASTATIN [Concomitant]
     Indication: DRUG USE FOR UNKNOWN INDICATION
     Dosage: TOTAL DAILY DOSE: 40000000 U  UNIT DOSE: 40000000 U
     Route: 042
     Dates: start: 20061229, end: 20061231
  3. OMEPRAZOLE [Concomitant]
     Indication: DRUG USE FOR UNKNOWN INDICATION
     Dosage: TOTAL DAILY DOSE: 80 MG
     Route: 042
     Dates: start: 20061229, end: 20061231
  4. METRONIDAZOLE [Concomitant]
     Indication: DRUG USE FOR UNKNOWN INDICATION
     Dosage: TOTAL DAILY DOSE: 200 ML
     Route: 042
     Dates: start: 20061229, end: 20061231

REACTIONS (10)
  - BLOOD CREATININE INCREASED [None]
  - BLOOD PRESSURE DECREASED [None]
  - BLOOD UREA INCREASED [None]
  - BODY TEMPERATURE INCREASED [None]
  - CHEST DISCOMFORT [None]
  - PALPITATIONS [None]
  - RENAL FAILURE ACUTE [None]
  - SHOCK [None]
  - TACHYPNOEA [None]
  - URINE OUTPUT DECREASED [None]
